FAERS Safety Report 16138123 (Version 1)
Quarter: 2019Q1

REPORT INFORMATION
  Report Type: Spontaneous
  Country: DK (occurrence: DK)
  Receive Date: 20190330
  Receipt Date: 20190330
  Transmission Date: 20190418
  Serious: Yes (Other)
  Sender: FDA-Public Use
  Company Number: DK-ACCORD-116615

PATIENT
  Age: 62 Year
  Sex: Female
  Weight: 82 kg

DRUGS (2)
  1. LETROZOLE ACCORD [Suspect]
     Active Substance: LETROZOLE
     Indication: BREAST CANCER IN SITU
     Dosage: STRENGTH: 2.5 MG.
     Route: 048
     Dates: start: 20150812, end: 20160217
  2. AMLODIPINE BESILATE KRKA [Concomitant]
     Indication: HYPERTENSION
     Dosage: STYRKE: 5 MG.
     Route: 048
     Dates: start: 20150724

REACTIONS (23)
  - Hot flush [Recovering/Resolving]
  - Suicidal ideation [Unknown]
  - Pain in extremity [Recovered/Resolved]
  - Gingival bleeding [Recovering/Resolving]
  - Food aversion [Recovering/Resolving]
  - Bone pain [Recovering/Resolving]
  - Mood swings [Recovering/Resolving]
  - Tinnitus [Not Recovered/Not Resolved]
  - Musculoskeletal stiffness [Recovering/Resolving]
  - Dry eye [Recovering/Resolving]
  - Cognitive disorder [Recovering/Resolving]
  - Decreased appetite [Recovering/Resolving]
  - Arthralgia [Recovering/Resolving]
  - Tachyphrenia [Recovering/Resolving]
  - Deafness bilateral [Not Recovered/Not Resolved]
  - Poor quality sleep [Recovering/Resolving]
  - Myalgia [Recovering/Resolving]
  - Hypertension [Not Recovered/Not Resolved]
  - Nausea [Recovering/Resolving]
  - Cochlea implant [Recovered/Resolved]
  - Mucosal dryness [Recovering/Resolving]
  - Depression [Recovering/Resolving]
  - Sensory disturbance [Recovering/Resolving]

NARRATIVE: CASE EVENT DATE: 20150819
